FAERS Safety Report 7202803-7 (Version None)
Quarter: 2010Q4

REPORT INFORMATION
  Report Type: 
  Country: None (occurrence: None)
  Receive Date: 20101229
  Receipt Date: 20101228
  Transmission Date: 20110411
  Serious: Yes (Hospitalization)
  Sender: FDA-Public Use
  Company Number: BR-PFIZER INC-2010180057

PATIENT
  Age: 52 Year
  Sex: Female
  Weight: 52 kg

DRUGS (2)
  1. CELEBRA [Suspect]
     Indication: BACK PAIN
     Dosage: 200 MG, UNK
     Route: 048
     Dates: start: 20000101
  2. OMEPRAZOLE [Concomitant]
     Indication: GASTRITIS
     Dosage: UNK

REACTIONS (2)
  - ANAPHYLACTIC SHOCK [None]
  - THROAT TIGHTNESS [None]
